FAERS Safety Report 8512796 (Version 2)
Quarter: 2013Q1

REPORT INFORMATION
  Report Type: Spontaneous
  Country: US (occurrence: US)
  Receive Date: 20120413
  Receipt Date: 20130227
  Transmission Date: 20140127
  Serious: No
  Sender: FDA-Public Use
  Company Number: US-ASTRAZENECA-2011SE52096

PATIENT
  Age: 66 Year
  Sex: Female
  Weight: 124.3 kg

DRUGS (20)
  1. NEXIUM [Suspect]
     Route: 048
  2. OMEPRAZOLE [Suspect]
     Route: 048
     Dates: start: 201105
  3. CRESTOR [Suspect]
     Route: 048
  4. ACIPHEX [Concomitant]
  5. ZITHROMAX [Concomitant]
  6. ALPHA TOCOPHEROL (VITAMIN E) [Concomitant]
  7. ASCORBIC ACID [Concomitant]
  8. ASPIRIN [Concomitant]
  9. BENADRYL [Concomitant]
  10. COENZYME Q10 [Concomitant]
  11. CYANOCOBALAMIN (VITAMIN B12) [Concomitant]
  12. CYCLOBENZAPRINE (FLEXERIL) [Concomitant]
     Indication: MUSCLE SPASMS
  13. FERROUS SULFATE (RA IRON) [Concomitant]
  14. EXFORGE [Concomitant]
  15. GLUCOSAMINE CHONDR COMPLEX [Concomitant]
  16. GNP CRANBERRY [Concomitant]
  17. LIDOCAINE (XYLOCAINE) [Concomitant]
  18. MENTHOL ZINC OXIDE (CALMOSEPTINE) [Concomitant]
  19. PLAVIX [Concomitant]
  20. PSEUDOEPHEDRINE (SUDAFED) [Concomitant]

REACTIONS (14)
  - Gastrooesophageal reflux disease [Unknown]
  - Sinus congestion [Unknown]
  - Upper-airway cough syndrome [Unknown]
  - Cough [Unknown]
  - Ear discomfort [Unknown]
  - Gastric disorder [Unknown]
  - Sinusitis [Unknown]
  - Fall [Unknown]
  - Excoriation [Unknown]
  - Joint injury [Unknown]
  - Dyspepsia [Unknown]
  - Dyspepsia [Unknown]
  - Drug dose omission [Unknown]
  - Drug ineffective [Unknown]
